FAERS Safety Report 25788505 (Version 1)
Quarter: 2025Q3

REPORT INFORMATION
  Report Type: Spontaneous
  Country: US (occurrence: US)
  Receive Date: 20250910
  Receipt Date: 20250910
  Transmission Date: 20251020
  Serious: Yes (Death, Other)
  Sender: PURDUE
  Company Number: US-PURDUE PHARMA-USA-2025-0320387

PATIENT
  Age: 28 Year
  Sex: Male

DRUGS (3)
  1. MORPHINE SULFATE [Suspect]
     Active Substance: MORPHINE SULFATE
     Indication: Product used for unknown indication
     Route: 065
  2. METHADONE [Suspect]
     Active Substance: METHADONE HYDROCHLORIDE
     Indication: Product used for unknown indication
     Route: 065
  3. CANNABIS SATIVA SUBSP. INDICA TOP [Suspect]
     Active Substance: CANNABIS SATIVA SUBSP. INDICA TOP
     Indication: Product used for unknown indication
     Route: 065

REACTIONS (8)
  - Completed suicide [Fatal]
  - Suicide threat [Unknown]
  - Road traffic accident [Unknown]
  - Loss of consciousness [Unknown]
  - Drug abuse [Unknown]
  - Drug dependence [Unknown]
  - Drug screen positive [Unknown]
  - Physical assault [Unknown]

NARRATIVE: CASE EVENT DATE: 20210101
